FAERS Safety Report 8477190-7 (Version None)
Quarter: 2012Q2

REPORT INFORMATION
  Report Type: 
  Country: None (occurrence: None)
  Receive Date: 20120625
  Receipt Date: 20120625
  Transmission Date: 20120825
  Serious: Yes (Life-Threatening, Hospitalization)
  Sender: FDA-Public Use
  Company Number: None

PATIENT
  Age: 69 Year
  Sex: Male
  Weight: 93.4 kg

DRUGS (1)
  1. PRADAXA [Suspect]
     Indication: ATRIAL FIBRILLATION
     Dosage: 150MG BID PO
     Route: 048
     Dates: start: 20111215, end: 20120622

REACTIONS (8)
  - HAEMOGLOBIN DECREASED [None]
  - DIZZINESS [None]
  - HYPERHIDROSIS [None]
  - MELAENA [None]
  - DYSPNOEA [None]
  - HAEMATOCRIT DECREASED [None]
  - FAECES DISCOLOURED [None]
  - HYPOTENSION [None]
